FAERS Safety Report 26059936 (Version 3)
Quarter: 2025Q4

REPORT INFORMATION
  Report Type: Spontaneous
  Country: US (occurrence: US)
  Receive Date: 20251118
  Receipt Date: 20251223
  Transmission Date: 20260119
  Serious: No
  Sender: ROCHE
  Company Number: US-ROCHE-10000436280

PATIENT
  Sex: Male

DRUGS (7)
  1. ERIVEDGE [Suspect]
     Active Substance: VISMODEGIB
     Indication: Skin cancer
     Route: 048
     Dates: start: 20251030
  2. AMLODIPINE B TAB 5 MG [Concomitant]
  3. ASPIRIN CHE 81 MG [Concomitant]
  4. EZETIMIBE TAB 10 MG [Concomitant]
  5. GLUCOSAMINE TAB [Concomitant]
  6. MULTIVITAMIN TAB [Concomitant]
  7. VITAMIN C TAB 1000 MG [Concomitant]

REACTIONS (6)
  - Dyspepsia [Not Recovered/Not Resolved]
  - Lethargy [Not Recovered/Not Resolved]
  - Constipation [Not Recovered/Not Resolved]
  - Pain in extremity [Not Recovered/Not Resolved]
  - Hypersomnia [Recovered/Resolved]
  - Malaise [Recovered/Resolved]
